FAERS Safety Report 8372939-6 (Version None)
Quarter: 2012Q2

REPORT INFORMATION
  Report Type: 
  Country: None (occurrence: None)
  Receive Date: 20120521
  Receipt Date: 20110906
  Transmission Date: 20120825
  Serious: No
  Sender: FDA-Public Use
  Company Number: US-ASTRAZENECA-2011SE53662

PATIENT
  Age: 53 Year
  Sex: Female

DRUGS (18)
  1. LISINOPRIL AND HYDROCHLOROTHIAZIDE [Suspect]
     Route: 048
  2. TRIAMCINOLONE [Concomitant]
  3. VITAMIN B COMPLEX CAP [Concomitant]
  4. PRILOSEC OTC [Suspect]
     Route: 048
  5. CINNAMON [Concomitant]
  6. NAPROSYN [Concomitant]
  7. LEVOTHYROXINE SODIUM [Concomitant]
  8. DOCUSATE SODIUM [Concomitant]
  9. ASCORBIC ACID [Concomitant]
  10. VENTOLIN HFA [Concomitant]
  11. MULTI-VITAMINS [Concomitant]
  12. GLYBURIDE [Concomitant]
  13. METFORMIN HCL [Concomitant]
  14. LINOLEIC ACID CONJUGATE [Concomitant]
  15. L-CARNITINE [Concomitant]
  16. METOCLOPRAMIDE [Concomitant]
  17. ASPIRIN [Concomitant]
  18. CALCIUM AND MAGNESIUM CARBONATES [Concomitant]

REACTIONS (2)
  - COLONIC POLYP [None]
  - VERTIGO [None]
